FAERS Safety Report 15632910 (Version 1)
Quarter: 2018Q4

REPORT INFORMATION
  Report Type: Spontaneous
  Country: AF (occurrence: AF)
  Receive Date: 20181113
  Receipt Date: 20181113
  Transmission Date: 20190205
  Serious: Yes (Hospitalization)
  Sender: FDA-Public Use
  Company Number: None

PATIENT
  Age: 13 Year
  Sex: Male

DRUGS (16)
  1. MONTELUKAST [Concomitant]
     Active Substance: MONTELUKAST SODIUM
  2. PROGRAF [Concomitant]
     Active Substance: TACROLIMUS\TACROLIMUS ANHYDROUS
  3. SIROLIMUS. [Concomitant]
     Active Substance: SIROLIMUS
  4. TACROLIMUS. [Concomitant]
     Active Substance: TACROLIMUS
  5. GENTAMICIN. [Suspect]
     Active Substance: GENTAMICIN
     Indication: PSEUDOMONAS INFECTION
     Route: 055
     Dates: start: 20180830
  6. XOPENEX [Concomitant]
     Active Substance: LEVALBUTEROL HYDROCHLORIDE
  7. FERROUS SULF [Concomitant]
     Active Substance: FERROUS SULFATE
  8. LEVOCETRIZINE [Concomitant]
     Active Substance: LEVOCETIRIZINE
  9. MAGNESIUM-OX [Concomitant]
  10. PREDNISOLONE. [Concomitant]
     Active Substance: PREDNISOLONE
  11. CYPROHEPTAD [Concomitant]
  12. LASOPRAZOLE [Concomitant]
     Active Substance: LANSOPRAZOLE
  13. SODIUM CHLORIDE. [Concomitant]
     Active Substance: SODIUM CHLORIDE
  14. AMLODIPINE [Concomitant]
     Active Substance: AMLODIPINE BESYLATE
  15. CELLCEPT [Concomitant]
     Active Substance: MYCOPHENOLATE MOFETIL\MYCOPHENOLATE MOFETIL HYDROCHLORIDE
  16. PRAVASTATIN. [Concomitant]
     Active Substance: PRAVASTATIN

REACTIONS (1)
  - Hospitalisation [None]

NARRATIVE: CASE EVENT DATE: 20181113
